FAERS Safety Report 11264976 (Version 1)
Quarter: 2015Q3

REPORT INFORMATION
  Report Type: Spontaneous
  Country: IT (occurrence: IT)
  Receive Date: 20150713
  Receipt Date: 20150713
  Transmission Date: 20151125
  Serious: Yes (Hospitalization)
  Sender: FDA-Public Use
  Company Number: IT-SUN PHARMACEUTICAL INDUSTRIES LTD-2015RR-100107

PATIENT

DRUGS (4)
  1. ALPRAZOLAM. [Suspect]
     Active Substance: ALPRAZOLAM
     Indication: INTENTIONAL SELF-INJURY
     Dosage: 5 MG, TOTAL
     Route: 048
     Dates: start: 20150611, end: 20150611
  2. DELORAZEPAM [Suspect]
     Active Substance: DELORAZEPAM
     Indication: INTENTIONAL SELF-INJURY
     Dosage: 5 MG, TOTAL
     Route: 048
     Dates: start: 20150611, end: 20150611
  3. HALDOL [Suspect]
     Active Substance: HALOPERIDOL
     Indication: INTENTIONAL SELF-INJURY
     Dosage: 15 ML, TOTAL
     Route: 048
     Dates: start: 20150611, end: 20150611
  4. MOMENT [Suspect]
     Active Substance: IBUPROFEN
     Indication: INTENTIONAL SELF-INJURY
     Dosage: 10 DF, TOTAL
     Route: 048
     Dates: start: 20150611, end: 20150611

REACTIONS (2)
  - Drug abuse [Unknown]
  - Sopor [Unknown]

NARRATIVE: CASE EVENT DATE: 20150611
